FAERS Safety Report 8618969-8 (Version None)
Quarter: 2012Q3

REPORT INFORMATION
  Report Type: 
  Country: None (occurrence: None)
  Receive Date: 20120824
  Receipt Date: 20120816
  Transmission Date: 20120928
  Serious: Yes (Other)
  Sender: FDA-Public Use
  Company Number: PHHY2012JP071607

PATIENT
  Age: 27 Year
  Sex: Female

DRUGS (4)
  1. SIMULECT [Suspect]
     Route: 042
  2. TACROLIMUS [Concomitant]
  3. MYCOPHENOLATE MOFETIL (CELLCEPT) [Concomitant]
  4. MEDROL [Concomitant]

REACTIONS (3)
  - URETERIC ANASTOMOSIS COMPLICATION [None]
  - NEUTROPENIA [None]
  - LEUKOENCEPHALOPATHY [None]
